FAERS Safety Report 17970996 (Version 6)
Quarter: 2022Q1

REPORT INFORMATION
  Report Type: Report from Study
  Country: JP (occurrence: JP)
  Receive Date: 20200701
  Receipt Date: 20220113
  Transmission Date: 20220423
  Serious: Yes (Hospitalization)
  Sender: FDA-Public Use
  Company Number: JP-PFIZER INC-2020215107

PATIENT
  Age: 75 Year
  Sex: Male
  Weight: 71 kg

DRUGS (19)
  1. VYNDAQEL [Suspect]
     Active Substance: TAFAMIDIS MEGLUMINE
     Indication: Cardiac amyloidosis
     Dosage: 80 MG, 1X/DAY
     Route: 048
     Dates: start: 20200428
  2. XARELTO [Suspect]
     Active Substance: RIVAROXABAN
     Indication: Atrial fibrillation
     Dosage: UNK
     Route: 048
     Dates: start: 20200331
  3. XARELTO [Suspect]
     Active Substance: RIVAROXABAN
     Indication: Thrombosis prophylaxis
  4. AMITIZA [Suspect]
     Active Substance: LUBIPROSTONE
     Indication: Constipation
     Dosage: UNK
     Route: 048
     Dates: start: 20180610
  5. AMITIZA [Suspect]
     Active Substance: LUBIPROSTONE
     Dosage: 24 UG, 1X/DAY
     Route: 048
     Dates: start: 20180702, end: 20181001
  6. AMITIZA [Suspect]
     Active Substance: LUBIPROSTONE
     Dosage: 24 UG, 2X/DAY
     Route: 048
     Dates: start: 20181001
  7. SENNOSIDES A AND B [Suspect]
     Active Substance: SENNOSIDES A AND B
     Indication: Constipation
     Dosage: UNK
     Route: 048
     Dates: start: 20180610, end: 2018
  8. SENNOSIDES A AND B [Suspect]
     Active Substance: SENNOSIDES A AND B
     Dosage: 2 DF, 2X/DAY
     Route: 048
     Dates: start: 20180702, end: 20200428
  9. SENNOSIDES A AND B [Suspect]
     Active Substance: SENNOSIDES A AND B
     Dosage: 3 DF, 3X/DAY
     Route: 048
     Dates: start: 20200428, end: 20200525
  10. SENNOSIDES A AND B [Suspect]
     Active Substance: SENNOSIDES A AND B
     Dosage: 1 DF, 1X/DAY
     Route: 048
     Dates: start: 20200526
  11. SAMSCA [Concomitant]
     Active Substance: TOLVAPTAN
     Indication: Cardiac failure
     Dosage: 3.75 MG, 1X/DAY
     Route: 048
     Dates: start: 20200331, end: 20200428
  12. SAMSCA [Concomitant]
     Active Substance: TOLVAPTAN
     Dosage: 7.5 MG, 1X/DAY
     Route: 048
     Dates: start: 20200428, end: 20200526
  13. SAMSCA [Concomitant]
     Active Substance: TOLVAPTAN
     Dosage: 15 MG, 1X/DAY
     Route: 048
     Dates: start: 20200526
  14. MAGNESIUM OXIDE [Concomitant]
     Active Substance: MAGNESIUM OXIDE
     Indication: Constipation
     Dosage: 1.2 G, DAILY
     Route: 048
     Dates: start: 20180702, end: 20200428
  15. CANAGLIFLOZIN\TENELIGLIPTIN [Concomitant]
     Active Substance: CANAGLIFLOZIN\TENELIGLIPTIN
     Indication: Diabetes mellitus
     Dosage: UNK
  16. CARVEDILOL [Concomitant]
     Active Substance: CARVEDILOL
     Indication: Cardiac failure
     Dosage: UNK
     Route: 048
     Dates: start: 20180610
  17. ENALAPRIL [Concomitant]
     Active Substance: ENALAPRIL
     Indication: Cardiac failure
     Dosage: UNK
     Route: 048
     Dates: start: 20200331
  18. AZOSEMIDE [Concomitant]
     Active Substance: AZOSEMIDE
     Indication: Cardiac failure
     Dosage: UNK
     Route: 048
     Dates: start: 20180610
  19. TENELIGLIPTIN [Concomitant]
     Active Substance: TENELIGLIPTIN
     Indication: Type 2 diabetes mellitus
     Dosage: UNK
     Route: 048
     Dates: start: 20200527, end: 20200622

REACTIONS (2)
  - Subdural haematoma [Recovering/Resolving]
  - Diarrhoea [Recovered/Resolved]

NARRATIVE: CASE EVENT DATE: 20200427
